FAERS Safety Report 5820139-3 (Version None)
Quarter: 2008Q3

REPORT INFORMATION
  Report Type: 
  Country: None (occurrence: None)
  Receive Date: 20080724
  Receipt Date: 20080714
  Transmission Date: 20090109
  Serious: Yes (Other)
  Sender: FDA-Public Use
  Company Number: PHEH2008US04741

PATIENT
  Sex: Female
  Weight: 58.503 kg

DRUGS (5)
  1. ALISKIREN [Suspect]
     Indication: HYPERTENSION
     Dosage: 150 MG, UNK
     Route: 048
     Dates: start: 20080212, end: 20080326
  2. METOPROLOL TARTRATE [Concomitant]
     Indication: CORONARY ARTERY DISEASE
     Dosage: 25 MG, QD
     Route: 048
     Dates: start: 19980101
  3. LIPITOR [Concomitant]
     Indication: DYSLIPIDAEMIA
     Dosage: 5 MG, QD
     Route: 048
     Dates: start: 19990301
  4. INDOCIN [Concomitant]
     Indication: OSTEOARTHRITIS
     Dosage: 25 MG, QD
     Route: 048
     Dates: start: 19920101
  5. ASPIRIN [Concomitant]
     Indication: CORONARY ARTERY DISEASE
     Dosage: 325 MG, QD
     Route: 048
     Dates: start: 20030401

REACTIONS (1)
  - HALLUCINATION [None]
